FAERS Safety Report 24594243 (Version 1)
Quarter: 2024Q4

REPORT INFORMATION
  Report Type: Spontaneous
  Country: US (occurrence: US)
  Receive Date: 20241108
  Receipt Date: 20241108
  Transmission Date: 20250115
  Serious: Yes (Hospitalization, Other)
  Sender: RANBAXY
  Company Number: US-SUN PHARMACEUTICAL INDUSTRIES LTD-2024R1-478120

PATIENT
  Age: 19 Year
  Sex: Female

DRUGS (6)
  1. BUPIVACAINE [Suspect]
     Active Substance: BUPIVACAINE
     Indication: Anaesthesia
     Dosage: 2.5 MILLIGRAM
     Route: 065
  2. FENTANYL [Suspect]
     Active Substance: FENTANYL
     Indication: Anaesthesia
     Dosage: 5 MILLIGRAM
     Route: 065
  3. MORPHINE [Suspect]
     Active Substance: MORPHINE
     Indication: Pain
     Dosage: 4 MILLIGRAM
     Route: 065
  4. LIDOCAINE [Suspect]
     Active Substance: LIDOCAINE
     Indication: Anaesthesia
     Dosage: UNK
     Route: 065
  5. OXYTOCIN [Suspect]
     Active Substance: OXYTOCIN
     Indication: Prophylaxis
     Dosage: UNK
     Route: 030
  6. TRANEXAMIC ACID [Suspect]
     Active Substance: TRANEXAMIC ACID
     Indication: Prophylaxis
     Dosage: UNK
     Route: 042

REACTIONS (5)
  - Exposure during pregnancy [Unknown]
  - Condition aggravated [Unknown]
  - Uterine atony [Unknown]
  - Postpartum haemorrhage [Unknown]
  - Live birth [Unknown]
